FAERS Safety Report 4353453-1 (Version None)
Quarter: 2004Q2

REPORT INFORMATION
  Report Type: 
  Country: None (occurrence: None)
  Receive Date: 20040430
  Receipt Date: 20040420
  Transmission Date: 20050107
  Serious: No
  Sender: FDA-Public Use
  Company Number: US-JNJFOC-20040404581

PATIENT
  Age: 53 Year
  Sex: Male

DRUGS (12)
  1. INFLIXIMAB, RECOMBINANT-BLINDED (INFLIXIMAB, RECOMBINANT) LYOPHILIZED [Suspect]
     Indication: PSORIASIS
     Dosage: INTRAVENOUS
     Route: 042
     Dates: start: 20031201
  2. INFLIXIMAB, RECOMBINANT-BLINDED (INFLIXIMAB, RECOMBINANT) LYOPHILIZED [Suspect]
     Indication: PSORIASIS
     Dosage: INTRAVENOUS
     Route: 042
     Dates: start: 20031216
  3. INFLIXIMAB, RECOMBINANT-BLINDED (INFLIXIMAB, RECOMBINANT) LYOPHILIZED [Suspect]
     Indication: PSORIASIS
     Dosage: INTRAVENOUS
     Route: 042
     Dates: start: 20040112
  4. INFLIXIMAB, RECOMBINANT-BLINDED (INFLIXIMAB, RECOMBINANT) LYOPHILIZED [Suspect]
     Indication: PSORIASIS
     Dosage: INTRAVENOUS
     Route: 042
     Dates: start: 20040309
  5. INFLIXIMAB, RECOMBINANT-BLINDED (INFLIXIMAB, RECOMBINANT) LYOPHILIZED [Suspect]
     Indication: PSORIASIS
     Dosage: INTRAVENOUS
     Route: 042
     Dates: start: 20040323
  6. INFLIXIMAB, RECOMBINANT-BLINDED (INFLIXIMAB, RECOMBINANT) LYOPHILIZED [Suspect]
     Indication: PSORIASIS
     Dosage: INTRAVENOUS
     Route: 042
     Dates: start: 20040405
  7. PLACEBO (PLACEBO) LYOPHILIZED POWDER [Suspect]
     Indication: PSORIASIS
     Dosage: INTRAVENOUS
     Route: 042
     Dates: start: 20031201
  8. PLACEBO (PLACEBO) LYOPHILIZED POWDER [Suspect]
     Indication: PSORIASIS
     Dosage: INTRAVENOUS
     Route: 042
     Dates: start: 20031216
  9. PLACEBO (PLACEBO) LYOPHILIZED POWDER [Suspect]
     Indication: PSORIASIS
     Dosage: INTRAVENOUS
     Route: 042
     Dates: start: 20040112
  10. PLACEBO (PLACEBO) LYOPHILIZED POWDER [Suspect]
     Indication: PSORIASIS
     Dosage: INTRAVENOUS
     Route: 042
     Dates: start: 20040309
  11. PLACEBO (PLACEBO) LYOPHILIZED POWDER [Suspect]
     Indication: PSORIASIS
     Dosage: INTRAVENOUS
     Route: 042
     Dates: start: 20040323
  12. PLACEBO (PLACEBO) LYOPHILIZED POWDER [Suspect]
     Indication: PSORIASIS
     Dosage: INTRAVENOUS
     Route: 042
     Dates: start: 20040405

REACTIONS (1)
  - BASAL CELL CARCINOMA [None]
